FAERS Safety Report 14275267 (Version 5)
Quarter: 2018Q4

REPORT INFORMATION
  Report Type: Spontaneous
  Country: JP (occurrence: JP)
  Receive Date: 20171212
  Receipt Date: 20181224
  Transmission Date: 20190204
  Serious: Yes (Life-Threatening, Hospitalization, Other)
  Sender: FDA-Public Use
  Company Number: JP-009507513-1711JPN001927J

PATIENT
  Age: 75 Year
  Sex: Male
  Weight: 56 kg

DRUGS (5)
  1. KEYTRUDA [Suspect]
     Active Substance: PEMBROLIZUMAB
     Indication: LUNG ADENOCARCINOMA
     Dosage: 200 MG, Q3W
     Route: 041
     Dates: start: 20170920, end: 20171019
  2. FIRSTCIN [Concomitant]
     Active Substance: CEFOZOPRAN HYDROCHLORIDE
     Indication: BACTERAEMIA
     Dosage: 2 G, BID
     Route: 042
     Dates: start: 20171003, end: 20171005
  3. MEROPENEM. [Concomitant]
     Active Substance: MEROPENEM
     Indication: PANCREATITIS
     Dosage: 0.5 G, TID
     Route: 042
     Dates: start: 20170919, end: 20171003
  4. REMINARON [Concomitant]
     Active Substance: GABEXATE MESYLATE
     Indication: PANCREATITIS
     Dosage: 100 MG, TID
     Route: 042
     Dates: start: 20170915, end: 20171005
  5. VANCOMYCIN HYDROCHLORIDE. [Concomitant]
     Active Substance: VANCOMYCIN HYDROCHLORIDE
     Indication: GASTROENTERITIS STAPHYLOCOCCAL
     Dosage: 0.125 G, QID
     Route: 048
     Dates: start: 20171003, end: 20171009

REACTIONS (9)
  - Nephritis [Unknown]
  - Hepatic function abnormal [Recovered/Resolved]
  - Urticaria [Recovered/Resolved]
  - Pneumocystis jirovecii pneumonia [Recovered/Resolved]
  - Disseminated intravascular coagulation [Recovered/Resolved]
  - Hepatic enzyme increased [Recovered/Resolved]
  - Brain oedema [Unknown]
  - Hepatic enzyme increased [Recovered/Resolved]
  - Hepatic function abnormal [Recovered/Resolved]

NARRATIVE: CASE EVENT DATE: 2017
